FAERS Safety Report 5354939-3 (Version None)
Quarter: 2007Q2

REPORT INFORMATION
  Report Type: 
  Country: None (occurrence: None)
  Receive Date: 20070521
  Receipt Date: 20070322
  Transmission Date: 20071010
  Serious: No
  Sender: FDA-Public Use
  Company Number: WAES 0703USA04491

PATIENT
  Age: 75 Year
  Sex: Male

DRUGS (4)
  1. JANUVIA [Suspect]
     Indication: DIABETES MELLITUS
     Dosage: 100 MG/DAILY/PO
     Route: 048
     Dates: start: 20070320
  2. GLUCOPHAGE [Concomitant]
  3. GLUCOTROL [Concomitant]
  4. STATIN [Concomitant]

REACTIONS (2)
  - ASTHENIA [None]
  - FATIGUE [None]
